FAERS Safety Report 12570262 (Version 2)
Quarter: 2016Q3

REPORT INFORMATION
  Report Type: Spontaneous
  Country: HU (occurrence: HU)
  Receive Date: 20160719
  Receipt Date: 20160810
  Transmission Date: 20161109
  Serious: Yes (Death, Hospitalization, Other)
  Sender: FDA-Public Use
  Company Number: HU-PFIZER INC-2016328247

PATIENT
  Age: 57 Year
  Sex: Male

DRUGS (12)
  1. SUTENT [Suspect]
     Active Substance: SUNITINIB MALATE
     Dosage: 50 MG, CYCLIC(FROM THE SECOND CYCLE,ONCE DAILY, ACCORDING TO 4/2 SCHEMA )
     Route: 048
     Dates: start: 20160620, end: 20160703
  2. CONTRAMAL [Concomitant]
     Active Substance: TRAMADOL HYDROCHLORIDE
  3. SUTENT [Suspect]
     Active Substance: SUNITINIB MALATE
     Indication: RENAL CANCER
     Dosage: 50 MG, 1X/DAY (ACCORDING TO 4/2 SCHEMA)
     Route: 048
     Dates: start: 20160509
  4. NOLPAZA [Concomitant]
     Active Substance: PANTOPRAZOLE SODIUM
  5. TEGRETOL [Concomitant]
     Active Substance: CARBAMAZEPINE
  6. TRITACE [Concomitant]
     Active Substance: RAMIPRIL
  7. BARACLUDE [Concomitant]
     Active Substance: ENTECAVIR
  8. AFLAMIN [Concomitant]
  9. ASPIRIN. [Concomitant]
     Active Substance: ASPIRIN
  10. SYNCUMAR [Concomitant]
     Active Substance: ACENOCOUMAROL
  11. CONCOR [Concomitant]
     Active Substance: BISOPROLOL FUMARATE
  12. RELTEBON [Concomitant]
     Active Substance: OXYCODONE HYDROCHLORIDE

REACTIONS (4)
  - Anaemia [Not Recovered/Not Resolved]
  - Small intestinal perforation [Unknown]
  - Rectal haemorrhage [Unknown]
  - Death [Fatal]

NARRATIVE: CASE EVENT DATE: 20160627
